FAERS Safety Report 6093104-1 (Version None)
Quarter: 2009Q1

REPORT INFORMATION
  Report Type: 
  Country: None (occurrence: None)
  Receive Date: 20090226
  Receipt Date: 20090220
  Transmission Date: 20090719
  Serious: Yes (Disabling)
  Sender: FDA-Public Use
  Company Number: IE-JNJFOC-20090205184

PATIENT
  Age: 73 Year
  Sex: Male

DRUGS (9)
  1. TAVANIC [Suspect]
     Indication: PREMEDICATION
     Route: 048
  2. TAVANIC [Suspect]
     Indication: UPPER RESPIRATORY TRACT INFECTION
     Route: 048
  3. UNKNOWN MEDICATION [Concomitant]
     Indication: CEREBROVASCULAR ACCIDENT
     Route: 048
  4. NUSEALS [Concomitant]
     Indication: CEREBROVASCULAR ACCIDENT
     Route: 048
  5. FOLIC ACID [Concomitant]
     Indication: CEREBROVASCULAR ACCIDENT
     Route: 065
  6. PERINDOPRIL ERBUMINE [Concomitant]
     Route: 048
  7. NEXIUM [Concomitant]
     Indication: GASTRITIS
     Route: 065
  8. DIFENE [Concomitant]
     Indication: ANALGESIA
     Route: 065
  9. DELTACORTENE [Concomitant]
     Indication: CHRONIC OBSTRUCTIVE PULMONARY DISEASE
     Route: 048

REACTIONS (2)
  - FALL [None]
  - TENDONITIS [None]
